FAERS Safety Report 24689367 (Version 1)
Quarter: 2024Q4

REPORT INFORMATION
  Report Type: Spontaneous
  Country: CA (occurrence: CA)
  Receive Date: 20241203
  Receipt Date: 20241203
  Transmission Date: 20250114
  Serious: Yes (Hospitalization)
  Sender: ROCHE
  Company Number: CA-ROCHE-10000145676

PATIENT
  Age: 54 Year
  Sex: Male
  Weight: 112 kg

DRUGS (3)
  1. RITUXIMAB [Suspect]
     Active Substance: RITUXIMAB
     Indication: Mantle cell lymphoma
     Route: 058
  2. CISPLATIN [Suspect]
     Active Substance: CISPLATIN
     Indication: Mantle cell lymphoma
     Route: 042
  3. CYTARABINE [Suspect]
     Active Substance: CYTARABINE
     Indication: Mantle cell lymphoma
     Route: 042

REACTIONS (5)
  - Acute kidney injury [Recovering/Resolving]
  - Electrolyte imbalance [Recovering/Resolving]
  - Intestinal obstruction [Recovering/Resolving]
  - Neutropenic colitis [Recovering/Resolving]
  - Off label use [Unknown]
